FAERS Safety Report 5831754-5 (Version None)
Quarter: 2008Q3

REPORT INFORMATION
  Report Type: 
  Country: None (occurrence: None)
  Receive Date: 20080803
  Receipt Date: 20080724
  Transmission Date: 20090109
  Serious: Yes (Hospitalization, Other)
  Sender: FDA-Public Use
  Company Number: PHHY2008CH15345

PATIENT
  Sex: Female

DRUGS (2)
  1. LOTENSIN HCT [Suspect]
     Indication: HYPERTENSION
     Dosage: 20/25 MG/DAY
  2. ACETYLSALICYLIC ACID SRT [Suspect]
     Dosage: 200 MG/DAY
     Dates: start: 20080401

REACTIONS (10)
  - ASTHENIA [None]
  - DISORIENTATION [None]
  - DIZZINESS [None]
  - FALL [None]
  - GENERAL PHYSICAL HEALTH DETERIORATION [None]
  - MEMORY IMPAIRMENT [None]
  - NAUSEA [None]
  - PNEUMONIA [None]
  - SYNCOPE [None]
  - URINARY INCONTINENCE [None]
